FAERS Safety Report 4696453-4 (Version None)
Quarter: 2005Q2

REPORT INFORMATION
  Report Type: 
  Country: None (occurrence: None)
  Receive Date: 20050620
  Receipt Date: 20050601
  Transmission Date: 20051028
  Serious: Yes (Disabling)
  Sender: FDA-Public Use
  Company Number: FACT0500386

PATIENT
  Age: 66 Year
  Sex: Female
  Weight: 128.8 kg

DRUGS (14)
  1. FACTIVE [Suspect]
     Indication: RESPIRATORY TRACT INFECTION BACTERIAL
     Dosage: 320 MG, QD, ORAL
     Route: 048
     Dates: start: 20050107, end: 20050114
  2. COUMADIN [Concomitant]
  3. AMIODARONE HCL [Concomitant]
  4. CARDIZEM CD [Concomitant]
  5. CLONIDINE [Concomitant]
  6. ALBUTEROL [Concomitant]
  7. MULTIVITAMINS (ASCORBIC ACID, ERGOCALCIFEROL, FOLIC ACID, NICOTINAMIDE [Concomitant]
  8. GARLIC (ALLIUM SATIVUM) [Concomitant]
  9. HYDROCHLOROTHIAZIDE [Concomitant]
  10. SYNTHROID [Concomitant]
  11. CARTIA /USA/ (DILTIAZEM HYDROCHLORIDE) [Concomitant]
  12. MUCINEX (GUAIFENESIN) [Concomitant]
  13. ADVAIR (FLUTICASONE PROPIONATE, SALMETEROL XINAFOATE) [Concomitant]
  14. PROMETHAZINE [Concomitant]

REACTIONS (17)
  - BLISTER [None]
  - BURNING SENSATION [None]
  - DRY SKIN [None]
  - DYSGEUSIA [None]
  - ERYTHEMA [None]
  - GLOSSODYNIA [None]
  - HEADACHE [None]
  - INSOMNIA [None]
  - NEUROPATHY [None]
  - PHOTOSENSITIVITY REACTION [None]
  - POST PROCEDURAL COMPLICATION [None]
  - PRURITUS [None]
  - RASH [None]
  - RETCHING [None]
  - SCAR [None]
  - TREMOR [None]
  - URTICARIA [None]
